FAERS Safety Report 12152861 (Version 4)
Quarter: 2016Q3

REPORT INFORMATION
  Report Type: Report from Study
  Country: IT (occurrence: IT)
  Receive Date: 20160305
  Receipt Date: 20160712
  Transmission Date: 20161109
  Serious: Yes (Hospitalization)
  Sender: FDA-Public Use
  Company Number: IT-AMGEN-ITACT2015123601

PATIENT
  Age: 71 Year
  Sex: Male

DRUGS (12)
  1. CARFILZOMIB [Suspect]
     Active Substance: CARFILZOMIB
     Indication: PLASMA CELL MYELOMA
     Dosage: 38 MG, PER CHEMO REGIM
     Route: 042
     Dates: start: 20151111
  2. ROSUVASTATIN. [Concomitant]
     Active Substance: ROSUVASTATIN
     Dosage: 20 MG, QD
     Route: 048
     Dates: start: 20150101
  3. FILGRASTIM [Concomitant]
     Active Substance: FILGRASTIM
     Dosage: UNK
     Route: 058
     Dates: start: 20151114, end: 20151128
  4. RAMIPRIL. [Concomitant]
     Active Substance: RAMIPRIL
     Dosage: 2.5-5 MG, UNK
     Route: 048
     Dates: start: 20070101, end: 20151125
  5. LANSOPRAZOLE. [Concomitant]
     Active Substance: LANSOPRAZOLE
     Dosage: 30 MG, QD
     Route: 048
     Dates: start: 20150227
  6. WARFARIN [Concomitant]
     Active Substance: WARFARIN
     Dosage: 25 MG, QWK
     Route: 048
     Dates: start: 20150310
  7. DOBETIN [Concomitant]
     Active Substance: CYANOCOBALAMIN
     Dosage: 5000 UNK, UNK
     Route: 030
     Dates: start: 20151023, end: 20151122
  8. ACYCLOVIR. [Concomitant]
     Active Substance: ACYCLOVIR
     Dosage: 400 MG, UNK
     Route: 048
     Dates: start: 20151111
  9. CARBAMAZEPINE. [Concomitant]
     Active Substance: CARBAMAZEPINE
     Dosage: 200 MG, TID
     Route: 048
     Dates: start: 20140301
  10. DEXAMETHASONE. [Suspect]
     Active Substance: DEXAMETHASONE
     Indication: PLASMA CELL MYELOMA
     Dosage: 20 MG, PER CHEMO REGIM
     Route: 042
     Dates: start: 20151111
  11. SALBUTAMOL [Concomitant]
     Active Substance: ALBUTEROL
     Dosage: 7 GTT, TID
     Route: 055
     Dates: start: 20150101
  12. BECLOMETASONE DIPROPIONATE [Concomitant]
     Active Substance: BECLOMETHASONE DIPROPIONATE
     Dosage: 0.8 MG, TID
     Route: 055
     Dates: start: 20150101

REACTIONS (4)
  - Dyspnoea [Recovered/Resolved]
  - Brain natriuretic peptide increased [Recovered/Resolved]
  - Troponin I increased [Recovered/Resolved]
  - Acute myocardial infarction [Recovered/Resolved]

NARRATIVE: CASE EVENT DATE: 20151115
